FAERS Safety Report 6090926-8 (Version None)
Quarter: 2009Q1

REPORT INFORMATION
  Report Type: 
  Country: None (occurrence: None)
  Receive Date: 20090224
  Receipt Date: 20090130
  Transmission Date: 20090719
  Serious: Yes (Death)
  Sender: FDA-Public Use
  Company Number: US-TYCO HEALTHCARE/MALLINCKRODT-T200900279

PATIENT
  Age: 32 Year
  Sex: Male

DRUGS (3)
  1. METHADOSE [Suspect]
     Route: 048
  2. ALPRAZOLAM [Suspect]
     Route: 048
  3. ESZOPICLONE [Suspect]
     Route: 048

REACTIONS (1)
  - COMPLETED SUICIDE [None]
